FAERS Safety Report 10239583 (Version 1)
Quarter: 2014Q2

REPORT INFORMATION
  Report Type: Spontaneous
  Country: JP (occurrence: JP)
  Receive Date: 20140616
  Receipt Date: 20140616
  Transmission Date: 20141212
  Serious: Yes (Hospitalization)
  Sender: FDA-Public Use
  Company Number: JP-MUNDIPHARMA DS AND PHARMACOVIGILANCE-GBR-2014-0018719

PATIENT
  Age: 80 Year
  Sex: Male

DRUGS (2)
  1. OXYCODONE HCL PR TABLET 10 MG [Suspect]
     Indication: CANCER PAIN
     Dosage: 10 MG, DAILY
     Route: 048
     Dates: start: 20140430, end: 20140508
  2. OXYCODONE HYDROCHLORIDE [Suspect]
     Indication: CANCER PAIN
     Dosage: UNK
     Route: 065
     Dates: start: 20140509

REACTIONS (1)
  - Hepatic encephalopathy [Unknown]
